FAERS Safety Report 24653240 (Version 1)
Quarter: 2024Q4

REPORT INFORMATION
  Report Type: Spontaneous
  Country: CA (occurrence: CA)
  Receive Date: 20241122
  Receipt Date: 20241122
  Transmission Date: 20250114
  Serious: Yes (Hospitalization, Disabling, Other)
  Sender: BAYER HEALTHCARE PHARMACEUTICALS INC.
  Company Number: CA-BAYER-2024A162277

PATIENT
  Age: 21 Year
  Sex: Female

DRUGS (1)
  1. MIRENA [Suspect]
     Active Substance: LEVONORGESTREL
     Dosage: 20?G/DAY
     Route: 015

REACTIONS (23)
  - Ovarian cyst [Unknown]
  - Panic attack [Unknown]
  - Palpitations [Unknown]
  - Loss of libido [Unknown]
  - Vaginal infection [Unknown]
  - Breast pain [Unknown]
  - Abdominal distension [Unknown]
  - Migraine [Unknown]
  - Fatigue [Unknown]
  - Irritability [Unknown]
  - Alopecia [Unknown]
  - Anxiety [Unknown]
  - Depression [Unknown]
  - Ocular rosacea [Unknown]
  - Menstruation irregular [Unknown]
  - Nausea [Unknown]
  - Back pain [Unknown]
  - Dizziness [Unknown]
  - Arthralgia [Unknown]
  - Endometriosis [Unknown]
  - Hypoaesthesia [Unknown]
  - Decreased appetite [Unknown]
  - Surgery [Unknown]
